FAERS Safety Report 19087377 (Version 2)
Quarter: 2021Q2

REPORT INFORMATION
  Report Type: Spontaneous
  Country: US (occurrence: US)
  Receive Date: 20210402
  Receipt Date: 20210507
  Transmission Date: 20210717
  Serious: Yes (Hospitalization, Other)
  Sender: FDA-Public Use
  Company Number: US-TEVA-2021-US-1896730

PATIENT
  Age: 56 Year
  Sex: Male
  Weight: 127.91 kg

DRUGS (9)
  1. TAMSULOSIN HCL [Concomitant]
     Active Substance: TAMSULOSIN HYDROCHLORIDE
     Indication: BENIGN PROSTATIC HYPERPLASIA
     Route: 065
  2. BYSTOLIC [Concomitant]
     Active Substance: NEBIVOLOL HYDROCHLORIDE
     Indication: HYPERTENSION
     Dosage: STRENGTH: 5 MG
     Route: 065
     Dates: start: 2008, end: 202001
  3. ANDROGEL [Concomitant]
     Active Substance: TESTOSTERONE
     Indication: BLOOD TESTOSTERONE DECREASED
     Dosage: 1.62% FOUR PUMPS DAILY
     Route: 065
  4. ENALAPRIL MALEATE. [Concomitant]
     Active Substance: ENALAPRIL MALEATE
     Dosage: STRENGTH: 20 MG
     Route: 065
     Dates: start: 2008, end: 2018
  5. AMLODIPINE/VALSARTAN [Suspect]
     Active Substance: AMLODIPINE\VALSARTAN
     Indication: HYPERTENSION
     Dosage: STRENGTH: 10/320 MG
     Route: 065
     Dates: start: 20150619, end: 20150719
  6. FLONASE [Concomitant]
     Active Substance: FLUTICASONE PROPIONATE
     Indication: HYPERSENSITIVITY
     Dosage: AS NEEDED
     Route: 065
     Dates: start: 2015, end: 2018
  7. AMLODIPINE/VALSARTAN TEVA [Suspect]
     Active Substance: AMLODIPINE\VALSARTAN
     Indication: HYPERTENSION
     Dosage: STRENGTH: 10/320 MG
     Route: 065
     Dates: start: 20150807, end: 20171128
  8. HYDRALAZINE [Concomitant]
     Active Substance: HYDRALAZINE HYDROCHLORIDE
     Indication: HYPERTENSION
     Route: 065
  9. MELOXICAM. [Concomitant]
     Active Substance: MELOXICAM
     Route: 065

REACTIONS (1)
  - Small intestine carcinoma [Recovered/Resolved]
